FAERS Safety Report 4547899-6 (Version None)
Quarter: 2005Q1

REPORT INFORMATION
  Report Type: 
  Country: None (occurrence: None)
  Receive Date: 20050110
  Receipt Date: 20041229
  Transmission Date: 20050727
  Serious: Yes (Hospitalization, Other)
  Sender: FDA-Public Use
  Company Number: US-JNJFOC-20041103499

PATIENT
  Sex: Female
  Weight: 75.3 kg

DRUGS (22)
  1. REMICADE [Suspect]
     Indication: PSORIASIS
     Route: 042
  2. REMICADE [Suspect]
     Indication: RHEUMATOID ARTHRITIS
     Dosage: TOTAL OF 6 INFUSIONS
     Route: 042
  3. PREDNISONE [Concomitant]
  4. AMITRIPTYLINE HCL [Concomitant]
  5. AMBIEN [Concomitant]
     Dosage: AT HOUR OF SLEEP
  6. LIPITOR [Concomitant]
  7. CELEXA [Concomitant]
  8. POTASSIUM [Concomitant]
  9. HUMALOG [Concomitant]
     Dosage: 20 UNITS
  10. LANTUS [Concomitant]
     Dosage: 40-45 UNITS QHS
  11. DN 100 [Concomitant]
  12. DN 100 [Concomitant]
  13. DIOVAN [Concomitant]
  14. LIMBITROL [Concomitant]
  15. LIMBITROL [Concomitant]
     Dosage: 12.5/5 MG TWICE DAILY
  16. LOPRESSOR [Concomitant]
  17. BENTYL [Concomitant]
  18. PREMARIN [Concomitant]
     Dosage: 1.25  MG M-F
  19. AVADAMET [Concomitant]
     Dosage: 2/1000 MG 1/2 TABLET QD
  20. METHIMAZOLE [Concomitant]
     Dosage: 5 MG 1/2 TABLET DAILY
  21. NORVASC [Concomitant]
  22. THYROID TAB [Concomitant]

REACTIONS (4)
  - DIVERTICULUM INTESTINAL [None]
  - LYMPH NODE TUBERCULOSIS [None]
  - RENAL ANEURYSM [None]
  - THYROID NEOPLASM [None]
